FAERS Safety Report 8967749 (Version 4)
Quarter: 2013Q4

REPORT INFORMATION
  Report Type: Spontaneous
  Country: US (occurrence: None)
  Receive Date: 20121207
  Receipt Date: 20131114
  Transmission Date: 20140711
  Serious: Yes (Other)
  Sender: FDA-Public Use
  Company Number: 2012-004292

PATIENT
  Age: 67 Year
  Sex: Female

DRUGS (24)
  1. ACTONEL (RISEDRONATE SODIUM) TABLET, 35MG [Suspect]
     Indication: OSTEOPENIA
     Dosage: 35 MG ONCE WEEKLY, ORAL
     Route: 048
     Dates: start: 200304, end: 200306
  2. ACTONEL (RISEDRONATE SODIUM) TABLET, 35MG [Suspect]
     Indication: OSTEOPOROSIS
     Dosage: 35 MG ONCE WEEKLY, ORAL
     Route: 048
     Dates: start: 200304, end: 200306
  3. ACTONEL [Suspect]
     Indication: OSTEOPENIA
     Dosage: 30 MG ONCE WEEKLY, ORAL
     Route: 048
     Dates: start: 200101, end: 200304
  4. ACTONEL [Suspect]
     Indication: OSTEOPOROSIS
     Dosage: 30 MG ONCE WEEKLY, ORAL
     Route: 048
     Dates: start: 200101, end: 200304
  5. FOSAMAX (ALENDRONATE SODIUM) [Suspect]
     Indication: OSTEOPENIA
     Dosage: 70 MG, 1/WEEK, ORAL
     Route: 048
     Dates: start: 201306, end: 200711
  6. FOSAMAX (ALENDRONATE SODIUM) [Suspect]
     Indication: OSTEOPOROSIS
     Dosage: 70 MG, 1/WEEK, ORAL
     Route: 048
     Dates: start: 201306, end: 200711
  7. FOSAMAX PLUS D (ALENDRONATE SODIUM, COLECALCIFEROL) [Suspect]
     Indication: OSTEOPENIA
     Dosage: 70MG / 5600 IU 1/WEEK, ORAL
     Dates: start: 201009, end: 201012
  8. FOSAMAX PLUS D (ALENDRONATE SODIUM, COLECALCIFEROL) [Suspect]
     Indication: OSTEOPOROSIS
     Dosage: 70MG / 5600 IU 1/WEEK, ORAL
     Dates: start: 201009, end: 201012
  9. ASPIRIN (ACETYLSALICYLIC ACID) [Concomitant]
  10. SYNTHROID (LEVOTHYROXINE SODIUM) [Concomitant]
  11. TRICOR /00499301/ (FENOFIBRATE) [Concomitant]
  12. XENICAL (ORLISTAT) [Concomitant]
  13. ALEVE (NAPROXEN SODIUM) [Concomitant]
  14. VIOXX (ROFECOXIB) [Concomitant]
  15. GYNAZOLE (BUTOCONAZOLE NITRATE) [Concomitant]
  16. METROGEL (METRONIDAZOLE) [Concomitant]
  17. CLARINEX /01398501/ (DESLORATADINE) [Concomitant]
  18. OMEGA 3 /01334101/ (FISH OIL) [Concomitant]
  19. FOLTX (CYANOCOBALAMIN, FOLIC ACID, PYRIDOXINE HYDROCHLORIDE) [Concomitant]
  20. FOLIC ACID (FOLIC ACID) [Concomitant]
  21. VITAMIN B6 (PYRIDOXINE HYDROCHLORIDE) [Concomitant]
  22. BETAINE (BETAINE) [Concomitant]
  23. CALCIUM (CALCIUM) [Concomitant]
  24. VITAMIN D /00318501/ (COLECALCIFEROL) [Concomitant]

REACTIONS (6)
  - Atypical femur fracture [None]
  - Pain in extremity [None]
  - Low turnover osteopathy [None]
  - Stress fracture [None]
  - Incorrect drug administration duration [None]
  - Gastrooesophageal reflux disease [None]
